FAERS Safety Report 16114062 (Version 2)
Quarter: 2019Q3

REPORT INFORMATION
  Report Type: Spontaneous
  Country: US (occurrence: US)
  Receive Date: 20190325
  Receipt Date: 20190801
  Transmission Date: 20191004
  Serious: Yes (Hospitalization, Other)
  Sender: FDA-Public Use
  Company Number: US-GLAXOSMITHKLINE-US2019050341

PATIENT
  Sex: Female

DRUGS (3)
  1. COREG [Suspect]
     Active Substance: CARVEDILOL
     Indication: CARDIAC FAILURE CONGESTIVE
     Dosage: UNK
     Dates: start: 2006
  2. COREG [Suspect]
     Active Substance: CARVEDILOL
     Dosage: 25 MG, BID
  3. CARVEDILOL. [Suspect]
     Active Substance: CARVEDILOL
     Indication: CARDIAC FAILURE CONGESTIVE
     Dosage: UNK
     Dates: start: 2012

REACTIONS (12)
  - Product supply issue [Unknown]
  - Wrong technique in product usage process [Unknown]
  - Product substitution issue [Unknown]
  - Expired product administered [Unknown]
  - Middle insomnia [Unknown]
  - Cardiac arrest [Unknown]
  - Loss of consciousness [Unknown]
  - Hypotension [Unknown]
  - Swelling [Unknown]
  - Palpitations [Unknown]
  - Dyspnoea [Unknown]
  - Chest pain [Unknown]

NARRATIVE: CASE EVENT DATE: 2018
